FAERS Safety Report 6984520-1 (Version None)
Quarter: 2010Q3

REPORT INFORMATION
  Report Type: 
  Country: None (occurrence: None)
  Receive Date: 20100915
  Receipt Date: 20100831
  Transmission Date: 20110219
  Serious: Yes (Hospitalization, Other)
  Sender: FDA-Public Use
  Company Number: BR-MEDIMMUNE-MEDI-0011449

PATIENT
  Sex: Female
  Weight: 11.3 kg

DRUGS (4)
  1. SYNAGIS [Suspect]
     Indication: CARDIAC DISORDER
     Route: 030
     Dates: start: 20100517, end: 20100517
  2. FUROSEMIDE [Concomitant]
     Indication: CARDIAC DISORDER
     Route: 048
  3. CAPTOPRIL [Concomitant]
     Indication: CARDIAC DISORDER
     Route: 048
  4. DIGOXIN [Concomitant]
     Indication: CARDIAC DISORDER
     Route: 048

REACTIONS (1)
  - PNEUMONIA [None]
